FAERS Safety Report 4848850-1 (Version None)
Quarter: 2005Q4

REPORT INFORMATION
  Report Type: 
  Country: None (occurrence: None)
  Receive Date: 20051121
  Receipt Date: 20050804
  Transmission Date: 20060501
  Serious: Yes (Hospitalization)
  Sender: FDA-Public Use
  Company Number: 05P-163-0307541-00

PATIENT
  Age: 57 Year
  Sex: Female

DRUGS (6)
  1. DEPAKOTE ER [Suspect]
     Indication: BIPOLAR DISORDER
     Dosage: 500 MG, 2 IN 1 D, PER ORAL;  500 MG, 3 IN 1 D, PER ORAL
     Route: 048
     Dates: end: 20050729
  2. DEPAKOTE ER [Suspect]
     Indication: BIPOLAR DISORDER
     Dosage: 500 MG, 2 IN 1 D, PER ORAL;  500 MG, 3 IN 1 D, PER ORAL
     Route: 048
     Dates: start: 20050729
  3. ATORVASTATIN CALCIUM [Concomitant]
  4. LANSOPRAZOLE [Concomitant]
  5. METHAZOLAMIDE [Concomitant]
  6. ASPIRIN [Concomitant]

REACTIONS (2)
  - BIPOLAR DISORDER [None]
  - DRUG LEVEL DECREASED [None]
